FAERS Safety Report 7271734-9 (Version None)
Quarter: 2011Q1

REPORT INFORMATION
  Report Type: 
  Country: None (occurrence: None)
  Receive Date: 20110203
  Receipt Date: 20110126
  Transmission Date: 20110831
  Serious: Yes (Death, Hospitalization)
  Sender: FDA-Public Use
  Company Number: CA-BRISTOL-MYERS SQUIBB COMPANY-14786925

PATIENT
  Age: 76 Year
  Sex: Female

DRUGS (10)
  1. NORVASC [Concomitant]
  2. FOLIC ACID [Concomitant]
  3. PRILOSEC [Concomitant]
  4. MOBICOX [Concomitant]
  5. ORENCIA [Suspect]
     Indication: RHEUMATOID ARTHRITIS
     Dosage: 15JAN,15FEB10,1SEP10 NO.OF INF:20
     Route: 042
     Dates: start: 20090212
  6. IMURAN [Concomitant]
  7. PREDNISONE [Concomitant]
  8. FOSAMAX [Concomitant]
  9. METHOTREXATE SODIUM [Concomitant]
     Dosage: FROM:INJ
  10. LASIX [Concomitant]

REACTIONS (4)
  - SEPSIS [None]
  - DYSPNOEA [None]
  - CYSTITIS [None]
  - DEATH [None]
